FAERS Safety Report 7060797-1 (Version None)
Quarter: 2010Q4

REPORT INFORMATION
  Report Type: 
  Country: None (occurrence: None)
  Receive Date: 20101025
  Receipt Date: 20101019
  Transmission Date: 20110411
  Serious: Yes (Death)
  Sender: FDA-Public Use
  Company Number: US-BAXTER-2010BH026095

PATIENT

DRUGS (2)
  1. CYCLOPHOSPHAMIDE [Suspect]
     Indication: SCLERODERMA
     Route: 065
  2. GRANULOCYTE COLONY STIMULATING HORMONE [Concomitant]
     Indication: NEUTROPHIL COUNT DECREASED
     Route: 065

REACTIONS (1)
  - DEATH [None]
